FAERS Safety Report 4842938-7 (Version None)
Quarter: 2005Q4

REPORT INFORMATION
  Report Type: 
  Country: None (occurrence: None)
  Receive Date: 20051130
  Receipt Date: 20051118
  Transmission Date: 20060501
  Serious: Yes (Hospitalization)
  Sender: FDA-Public Use
  Company Number: 8012480

PATIENT
  Age: 49 Year
  Sex: Female
  Weight: 71.5 kg

DRUGS (2)
  1. KEPPRA [Suspect]
     Indication: EPILEPSY
     Dosage: 2000 MG /D PO
     Dates: start: 20020220
  2. FINLEPSIN [Suspect]
     Dosage: 600 MG /D PO

REACTIONS (6)
  - AGGRESSION [None]
  - ASTHENIA [None]
  - DYSPHEMIA [None]
  - DYSPNOEA [None]
  - SPEECH DISORDER [None]
  - VERTIGO [None]
